FAERS Safety Report 21891277 (Version 1)
Quarter: 2023Q1

REPORT INFORMATION
  Report Type: Spontaneous
  Country: IN (occurrence: IN)
  Receive Date: 20230120
  Receipt Date: 20230120
  Transmission Date: 20230418
  Serious: Yes (Hospitalization)
  Sender: FDA-Public Use
  Company Number: IN-VIRTUS PHARMACEUTICALS, LLC-2023VTS00002

PATIENT
  Age: 51 Year
  Sex: Female

DRUGS (2)
  1. PROGESTERONE [Suspect]
     Active Substance: PROGESTERONE
     Indication: Menstrual disorder
     Route: 048
  2. PROGESTERONE [Suspect]
     Active Substance: PROGESTERONE
     Indication: Heavy menstrual bleeding

REACTIONS (1)
  - Mesenteric artery thrombosis [Recovered/Resolved]
